FAERS Safety Report 9532111 (Version 1)
Quarter: 2013Q1

REPORT INFORMATION
  Report Type: Spontaneous
  Country: US (occurrence: None)
  Receive Date: 20130329
  Receipt Date: 20130329
  Transmission Date: 20140127
  Serious: Yes (Other)
  Sender: FDA-Public Use
  Company Number: 1000042824

PATIENT
  Age: 40 Year
  Sex: Female

DRUGS (13)
  1. LINZESS (LINACLOTIDE) (145 MICROGRAM, CAPSULES) [Suspect]
     Indication: CONSTIPATION
     Route: 048
     Dates: start: 201301, end: 201302
  2. MAGNESIUM CITRATE [Suspect]
     Indication: CONSTIPATION
     Dates: end: 201312
  3. SEROQUEL (QUETIAPINE FUMARATE) (QUETIAPINE FUMARATE) [Concomitant]
  4. XANAX XR (ALPRAZOLAM) (ALPRAZOLAM) [Concomitant]
  5. LORAZEPAM (LORAZEPAM) [Concomitant]
  6. TRAZODONE (TRAZODONE0 (TRAZODONE0 [Concomitant]
  7. AMBIEN (ZOLPIDEM TARTRATE) (ZOLPIDEM TARTRATE) [Concomitant]
  8. OXYCODONE (OXYCODONE) (OXYCODONE) [Concomitant]
  9. SOMA (CARISOPRODOL) (CARISOPRODOL) [Concomitant]
  10. EFFEXOR XR (VENLAFAXINE HYDROCHLORIDE) (VENLAFAXINE HYDROCHLORIDE) [Concomitant]
  11. VITAMIN D (VITAMIN D) (VITAMIN D) [Concomitant]
  12. VITAMIN B12 (VITAMIN B12) (VITAMIN B12) [Concomitant]
  13. BIOTIN (BIOTIN) (BIOTIN) [Concomitant]

REACTIONS (5)
  - Diarrhoea haemorrhagic [None]
  - Diarrhoea [None]
  - Flatulence [None]
  - Faeces hard [None]
  - Drug ineffective [None]
